FAERS Safety Report 7755348-X (Version None)
Quarter: 2011Q3

REPORT INFORMATION
  Report Type: 
  Country: None (occurrence: None)
  Receive Date: 20110914
  Receipt Date: 20110825
  Transmission Date: 20111222
  Serious: Yes (Hospitalization)
  Sender: FDA-Public Use
  Company Number: AXC-2011-000287

PATIENT
  Age: 59 Year
  Sex: Male
  Weight: 78 kg

DRUGS (2)
  1. VITAMINS NOS (VITAMINS NOS) [Concomitant]
  2. ZENPEP [Suspect]
     Indication: PANCREATIC NEUROENDOCRINE TUMOUR
     Dosage: UNK, ORAL
     Route: 048
     Dates: start: 20100101

REACTIONS (3)
  - ABDOMINAL DISTENSION [None]
  - BILIARY TRACT INFECTION [None]
  - ABDOMINAL PAIN UPPER [None]
